FAERS Safety Report 24387786 (Version 1)
Quarter: 2024Q4

REPORT INFORMATION
  Report Type: Spontaneous
  Country: US (occurrence: None)
  Receive Date: 20241001
  Receipt Date: 20241001
  Transmission Date: 20250115
  Serious: Yes (unspecified)
  Sender: Public
  Company Number: None

PATIENT
  Age: 66 Year
  Sex: Male
  Weight: 86.5 kg

DRUGS (1)
  1. TALVEY [Suspect]
     Active Substance: TALQUETAMAB-TGVS
     Indication: Plasma cell leukaemia
     Dosage: OTHER FREQUENCY : ONCE;?
     Route: 058
     Dates: start: 20240925, end: 20240930

REACTIONS (3)
  - Immune effector cell-associated neurotoxicity syndrome [None]
  - Mental status changes [None]
  - Depressed level of consciousness [None]

NARRATIVE: CASE EVENT DATE: 20240930
